FAERS Safety Report 13536867 (Version 25)
Quarter: 2019Q4

REPORT INFORMATION
  Report Type: Spontaneous
  Country: CA (occurrence: CA)
  Receive Date: 20170511
  Receipt Date: 20191002
  Transmission Date: 20200122
  Serious: Yes (Other)
  Sender: FDA-Public Use
  Company Number: CA-ORION CORPORATION ORION PHARMA-TREX2017-1374

PATIENT
  Age: 44 Year
  Sex: Female
  Weight: 63 kg

DRUGS (102)
  1. METHOTREXATE (TRADE NAME UNKNOWN) [Suspect]
     Active Substance: METHOTREXATE
     Indication: RHEUMATOID ARTHRITIS
     Route: 048
  2. METHOTREXATE (TRADE NAME UNKNOWN) [Suspect]
     Active Substance: METHOTREXATE
     Route: 058
     Dates: start: 2008
  3. ALENDRONIC ACID [Suspect]
     Active Substance: ALENDRONIC ACID
     Indication: PRODUCT USED FOR UNKNOWN INDICATION
     Route: 048
  4. AMITRIPTYLINE HYDROCHLORIDE. [Suspect]
     Active Substance: AMITRIPTYLINE HYDROCHLORIDE
     Indication: PRODUCT USED FOR UNKNOWN INDICATION
     Route: 048
     Dates: start: 2011
  5. LYRICA [Suspect]
     Active Substance: PREGABALIN
     Indication: RHEUMATOID ARTHRITIS
     Route: 048
  6. MOBICOX [Suspect]
     Active Substance: MELOXICAM
     Route: 048
  7. RANITIDINE. [Suspect]
     Active Substance: RANITIDINE
     Route: 065
  8. SULFASALAZINE. [Suspect]
     Active Substance: SULFASALAZINE
     Indication: RHEUMATOID ARTHRITIS
     Route: 048
  9. XELJANZ [Suspect]
     Active Substance: TOFACITINIB CITRATE
     Route: 048
  10. APO-RANITIDINE [Suspect]
     Active Substance: RANITIDINE
     Route: 048
  11. AZATHIOPRINE. [Suspect]
     Active Substance: AZATHIOPRINE
     Indication: RHEUMATOID ARTHRITIS
     Route: 048
  12. PREGABALIN. [Suspect]
     Active Substance: PREGABALIN
     Indication: PRODUCT USED FOR UNKNOWN INDICATION
     Route: 048
  13. FOSAMAX [Suspect]
     Active Substance: ALENDRONATE SODIUM
     Indication: PRODUCT USED FOR UNKNOWN INDICATION
     Route: 065
  14. CIMZIA [Concomitant]
     Active Substance: CERTOLIZUMAB PEGOL
     Route: 065
  15. METHOTREXATE (TRADE NAME UNKNOWN) [Suspect]
     Active Substance: METHOTREXATE
     Route: 058
     Dates: start: 2008
  16. PANTOLOC [Suspect]
     Active Substance: PANTOPRAZOLE SODIUM
     Indication: PRODUCT USED FOR UNKNOWN INDICATION
     Route: 048
  17. NAPROXEN. [Suspect]
     Active Substance: NAPROXEN
     Route: 048
  18. NAPROXEN. [Suspect]
     Active Substance: NAPROXEN
     Route: 048
  19. NAPROXEN. [Suspect]
     Active Substance: NAPROXEN
     Route: 048
  20. VIMOVO [Suspect]
     Active Substance: ESOMEPRAZOLE MAGNESIUM\NAPROXEN
     Indication: PRODUCT USED FOR UNKNOWN INDICATION
     Route: 065
  21. XELJANZ [Suspect]
     Active Substance: TOFACITINIB CITRATE
     Route: 048
  22. APO-ALENDRONATE [Suspect]
     Active Substance: ALENDRONATE SODIUM
     Indication: PRODUCT USED FOR UNKNOWN INDICATION
     Route: 065
  23. APO-PREDNISONE [Suspect]
     Active Substance: PREDNISONE
     Route: 065
  24. APO-RANITIDINE [Suspect]
     Active Substance: RANITIDINE
     Route: 048
     Dates: start: 2012
  25. ACETAMINOPHEN W/OXYCODONE [Suspect]
     Active Substance: ACETAMINOPHEN\OXYCODONE HYDROCHLORIDE
     Indication: PRODUCT USED FOR UNKNOWN INDICATION
     Route: 065
  26. OXYCODONE HYDROCHLORIDE. [Suspect]
     Active Substance: OXYCODONE HYDROCHLORIDE
     Indication: PRODUCT USED FOR UNKNOWN INDICATION
     Route: 065
  27. CELECOXIB. [Concomitant]
     Active Substance: CELECOXIB
     Route: 065
  28. CANNABIS SATIVA [Concomitant]
     Active Substance: CANNABIS SATIVA FLOWERING TOP
     Route: 065
  29. ELTROXIN [Concomitant]
     Active Substance: LEVOTHYROXINE
     Route: 065
  30. ORENCIA [Concomitant]
     Active Substance: ABATACEPT
     Route: 065
  31. ALENDRONIC ACID [Suspect]
     Active Substance: ALENDRONIC ACID
     Route: 065
  32. IMURAN [Suspect]
     Active Substance: AZATHIOPRINE
     Indication: PRODUCT USED FOR UNKNOWN INDICATION
     Route: 065
  33. NAPROXEN. [Suspect]
     Active Substance: NAPROXEN
     Indication: PRODUCT USED FOR UNKNOWN INDICATION
     Route: 048
     Dates: start: 2011
  34. NAPROXEN. [Suspect]
     Active Substance: NAPROXEN
     Route: 048
  35. RANITIDINE. [Suspect]
     Active Substance: RANITIDINE
     Indication: PRODUCT USED FOR UNKNOWN INDICATION
     Route: 048
  36. XELJANZ [Suspect]
     Active Substance: TOFACITINIB CITRATE
     Route: 048
  37. XELJANZ [Suspect]
     Active Substance: TOFACITINIB CITRATE
     Route: 048
  38. BACTRIM [Suspect]
     Active Substance: SULFAMETHOXAZOLE\TRIMETHOPRIM
     Indication: PRODUCT USED FOR UNKNOWN INDICATION
     Route: 065
  39. ESOMEPRAZOLE MAGNESIUM. [Suspect]
     Active Substance: ESOMEPRAZOLE MAGNESIUM
     Indication: PRODUCT USED FOR UNKNOWN INDICATION
     Route: 065
  40. ACETAMINOPHEN. [Suspect]
     Active Substance: ACETAMINOPHEN
     Indication: PRODUCT USED FOR UNKNOWN INDICATION
     Route: 065
  41. HYDROXYCHLOROQUINE SULFATE. [Concomitant]
     Active Substance: HYDROXYCHLOROQUINE SULFATE
     Route: 065
  42. HYDROXYCHLOROQUINE [Concomitant]
     Active Substance: HYDROXYCHLOROQUINE
     Route: 065
  43. ENBREL [Suspect]
     Active Substance: ETANERCEPT
     Route: 058
     Dates: end: 201807
  44. ENBREL [Suspect]
     Active Substance: ETANERCEPT
     Route: 058
     Dates: start: 200812, end: 201007
  45. ENBREL [Suspect]
     Active Substance: ETANERCEPT
     Route: 058
  46. NAPROXEN. [Suspect]
     Active Substance: NAPROXEN
     Route: 048
  47. SEPTRA [Suspect]
     Active Substance: SULFAMETHOXAZOLE\TRIMETHOPRIM
     Indication: PRODUCT USED FOR UNKNOWN INDICATION
     Route: 065
  48. TOFACITINIB [Suspect]
     Active Substance: TOFACITINIB
     Route: 048
     Dates: end: 20140927
  49. APO-NAPROXEN [Suspect]
     Active Substance: NAPROXEN
     Route: 048
  50. APO-NAPROXEN [Suspect]
     Active Substance: NAPROXEN
     Route: 048
  51. RATIO-OXYCOCET [Suspect]
     Active Substance: ACETAMINOPHEN\OXYCODONE HYDROCHLORIDE
     Indication: PRODUCT USED FOR UNKNOWN INDICATION
     Route: 065
  52. ESOMEPRAZOLE W/NAPROXEN [Suspect]
     Active Substance: ESOMEPRAZOLE MAGNESIUM\NAPROXEN
     Indication: PRODUCT USED FOR UNKNOWN INDICATION
     Route: 065
  53. ELAVIL [Suspect]
     Active Substance: AMITRIPTYLINE HYDROCHLORIDE
     Indication: PRODUCT USED FOR UNKNOWN INDICATION
     Route: 048
  54. HYDROXYCHLOROQUINE PHOSPHATE [Concomitant]
     Active Substance: HYDROXYCHLOROQUINE DIPHOSPHATE
     Route: 065
  55. HUMIRA [Suspect]
     Active Substance: ADALIMUMAB
     Route: 058
  56. LYRICA [Suspect]
     Active Substance: PREGABALIN
     Route: 048
  57. MOBICOX [Suspect]
     Active Substance: MELOXICAM
     Indication: PRODUCT USED FOR UNKNOWN INDICATION
     Route: 065
  58. PREDNISONE. [Suspect]
     Active Substance: PREDNISONE
     Route: 048
  59. APO-NAPROXEN [Suspect]
     Active Substance: NAPROXEN
     Indication: PRODUCT USED FOR UNKNOWN INDICATION
     Route: 048
  60. APO-NAPROXEN [Suspect]
     Active Substance: NAPROXEN
     Route: 048
  61. APO-RANITIDINE [Suspect]
     Active Substance: RANITIDINE
     Route: 065
  62. AMITRIPTYLINE PAMOATE [Suspect]
     Active Substance: AMITRIPTYLINE PAMOATE
     Indication: PRODUCT USED FOR UNKNOWN INDICATION
     Route: 048
  63. ESOMEPRAZOLE MAGNESIUM TRIHYDRATE [Suspect]
     Active Substance: ESOMEPRAZOLE MAGNESIUM
     Indication: PRODUCT USED FOR UNKNOWN INDICATION
     Route: 065
  64. TRIMETHOPRIM. [Suspect]
     Active Substance: TRIMETHOPRIM
     Indication: PRODUCT USED FOR UNKNOWN INDICATION
     Route: 065
  65. ADALIMUMAB [Suspect]
     Active Substance: ADALIMUMAB
     Indication: PRODUCT USED FOR UNKNOWN INDICATION
     Route: 058
  66. AMOXICILLIN. [Suspect]
     Active Substance: AMOXICILLIN
     Indication: PRODUCT USED FOR UNKNOWN INDICATION
     Route: 065
  67. FOLIC ACID. [Concomitant]
     Active Substance: FOLIC ACID
     Route: 065
  68. DEXILANT [Concomitant]
     Active Substance: DEXLANSOPRAZOLE
     Route: 065
  69. ENBREL [Suspect]
     Active Substance: ETANERCEPT
     Indication: RHEUMATOID ARTHRITIS
     Route: 058
     Dates: start: 200812, end: 201807
  70. TOFACITINIB [Suspect]
     Active Substance: TOFACITINIB
     Indication: RHEUMATOID ARTHRITIS
     Route: 048
  71. APO-MELOXICAM [Suspect]
     Active Substance: MELOXICAM
     Indication: PRODUCT USED FOR UNKNOWN INDICATION
     Route: 065
  72. APO-NAPROXEN [Suspect]
     Active Substance: NAPROXEN
     Route: 048
  73. METHYLPREDNISOLONE ACETATE. [Suspect]
     Active Substance: METHYLPREDNISOLONE ACETATE
     Indication: PRODUCT USED FOR UNKNOWN INDICATION
     Route: 065
  74. CELEBREX [Concomitant]
     Active Substance: CELECOXIB
     Route: 065
  75. HUMIRA [Suspect]
     Active Substance: ADALIMUMAB
     Indication: DRUG THERAPY
     Route: 058
     Dates: start: 201008, end: 201312
  76. IMURAN [Suspect]
     Active Substance: AZATHIOPRINE
     Route: 065
  77. MOBICOX [Suspect]
     Active Substance: MELOXICAM
     Route: 065
  78. PREDNISONE. [Suspect]
     Active Substance: PREDNISONE
     Indication: RHEUMATOID ARTHRITIS
     Route: 065
  79. PREDNISONE. [Suspect]
     Active Substance: PREDNISONE
     Route: 065
  80. OXYCOCET [Suspect]
     Active Substance: ACETAMINOPHEN\OXYCODONE HYDROCHLORIDE
     Indication: PRODUCT USED FOR UNKNOWN INDICATION
     Route: 065
  81. OXYCOCET [Suspect]
     Active Substance: ACETAMINOPHEN\OXYCODONE HYDROCHLORIDE
     Route: 048
  82. XELJANZ [Suspect]
     Active Substance: TOFACITINIB CITRATE
     Route: 048
     Dates: start: 20140927
  83. XELJANZ [Suspect]
     Active Substance: TOFACITINIB CITRATE
     Route: 048
  84. XELJANZ [Suspect]
     Active Substance: TOFACITINIB CITRATE
     Route: 048
  85. APO-PREDNISONE [Suspect]
     Active Substance: PREDNISONE
     Route: 065
  86. APO-RANITIDINE [Suspect]
     Active Substance: RANITIDINE
     Indication: PRODUCT USED FOR UNKNOWN INDICATION
     Route: 048
  87. APO-AMITRIPTYLINE [Suspect]
     Active Substance: AMITRIPTYLINE HYDROCHLORIDE
     Indication: PRODUCT USED FOR UNKNOWN INDICATION
     Route: 048
  88. SULFAMETHOXAZOLE W/TRIMETHOPRIM [Suspect]
     Active Substance: SULFAMETHOXAZOLE\TRIMETHOPRIM
     Indication: PRODUCT USED FOR UNKNOWN INDICATION
     Route: 065
  89. AZATHIOPRINE. [Suspect]
     Active Substance: AZATHIOPRINE
     Route: 065
  90. AMITRIPTYLINE [Suspect]
     Active Substance: AMITRIPTYLINE
     Indication: PRODUCT USED FOR UNKNOWN INDICATION
     Route: 048
  91. PANTOPRAZOLE [Suspect]
     Active Substance: PANTOPRAZOLE
     Indication: PRODUCT USED FOR UNKNOWN INDICATION
     Route: 048
  92. PANTOLOC [Suspect]
     Active Substance: PANTOPRAZOLE SODIUM
     Route: 065
  93. DEPO-MEDROL [Suspect]
     Active Substance: METHYLPREDNISOLONE ACETATE
     Indication: RHEUMATOID ARTHRITIS
     Route: 014
  94. RANITIDINE. [Suspect]
     Active Substance: RANITIDINE
     Route: 065
  95. RANITIDINE. [Suspect]
     Active Substance: RANITIDINE
     Route: 065
  96. SULFASALAZINE. [Suspect]
     Active Substance: SULFASALAZINE
     Route: 048
  97. XELJANZ [Suspect]
     Active Substance: TOFACITINIB CITRATE
     Indication: RHEUMATOID ARTHRITIS
     Route: 048
     Dates: end: 20140927
  98. APO-PREDNISONE [Suspect]
     Active Substance: PREDNISONE
     Indication: RHEUMATOID ARTHRITIS
     Route: 065
  99. METHYLPREDNISOLONE SODIUM SUCCINATE. [Suspect]
     Active Substance: METHYLPREDNISOLONE SODIUM SUCCINATE
     Indication: RHEUMATOID ARTHRITIS
     Route: 014
  100. ALENDRONATE [Suspect]
     Active Substance: ALENDRONATE SODIUM
     Indication: PRODUCT USED FOR UNKNOWN INDICATION
     Route: 065
  101. PLAQUENIL [Concomitant]
     Active Substance: HYDROXYCHLOROQUINE SULFATE
     Route: 065
  102. CODEINE [Concomitant]
     Active Substance: CODEINE
     Route: 065

REACTIONS (54)
  - Therapeutic product effect decreased [Unknown]
  - Crepitations [Unknown]
  - Swelling face [Unknown]
  - Synovial cyst [Unknown]
  - Haemoglobin decreased [Unknown]
  - Skin ulcer [Unknown]
  - Cushingoid [Unknown]
  - Dry mouth [Unknown]
  - Musculoskeletal pain [Unknown]
  - Pleuritic pain [Unknown]
  - Pruritus [Unknown]
  - Rash [Unknown]
  - Rheumatoid arthritis [Unknown]
  - Ulcer [Unknown]
  - Bursitis [Unknown]
  - Erythema [Unknown]
  - Eye pain [Unknown]
  - Flank pain [Unknown]
  - Lung disorder [Unknown]
  - Nausea [Unknown]
  - Photophobia [Unknown]
  - Scleritis [Unknown]
  - Tenosynovitis stenosans [Unknown]
  - Visual impairment [Unknown]
  - Contraindicated product administered [Unknown]
  - Abdominal pain [Unknown]
  - Antinuclear antibody positive [Unknown]
  - Arthralgia [Unknown]
  - Dry eye [Unknown]
  - Feeling jittery [Unknown]
  - Nodule [Unknown]
  - Atelectasis [Unknown]
  - Joint effusion [Unknown]
  - Joint swelling [Unknown]
  - Malaise [Unknown]
  - Neoplasm malignant [Unknown]
  - Peripheral swelling [Unknown]
  - Red blood cell count decreased [Unknown]
  - Drug ineffective [Unknown]
  - Fibromyalgia [Unknown]
  - Infection [Unknown]
  - Interstitial lung disease [Unknown]
  - Ocular hyperaemia [Unknown]
  - Pneumonia [Unknown]
  - Rheumatoid nodule [Unknown]
  - Thrombosis [Unknown]
  - Impaired work ability [Unknown]
  - Pain in extremity [Unknown]
  - Tenderness [Unknown]
  - Wheezing [Unknown]
  - Conjunctivitis [Unknown]
  - Dyspnoea [Unknown]
  - Eye irritation [Unknown]
  - Musculoskeletal stiffness [Unknown]

NARRATIVE: CASE EVENT DATE: 2012
